FAERS Safety Report 4539320-9 (Version None)
Quarter: 2004Q4

REPORT INFORMATION
  Report Type: 
  Country: None (occurrence: None)
  Receive Date: 20041228
  Receipt Date: 20040413
  Transmission Date: 20050328
  Serious: Yes (Hospitalization)
  Sender: FDA-Public Use
  Company Number: 200411381JP

PATIENT
  Age: 55 Year
  Sex: Female
  Weight: 46.3 kg

DRUGS (9)
  1. ARAVA [Suspect]
     Indication: RHEUMATOID ARTHRITIS
     Route: 048
     Dates: start: 20031211, end: 20031224
  2. PREDONINE [Suspect]
     Indication: RHEUMATOID ARTHRITIS
     Route: 048
  3. ITRIZOLE [Concomitant]
     Route: 048
  4. ALFAROL [Concomitant]
     Indication: OSTEOPOROSIS
     Route: 048
  5. DIOVAN [Concomitant]
     Indication: HYPERTENSION
     Route: 048
  6. BAKTAR [Concomitant]
     Route: 048
  7. FAMOTIDINE [Concomitant]
     Indication: GASTRITIS
     Route: 048
  8. CYTOTEC [Concomitant]
     Indication: GASTRIC ULCER
     Route: 048
  9. METHOTREXATE [Concomitant]

REACTIONS (2)
  - PNEUMOTHORAX [None]
  - PYOTHORAX [None]
